FAERS Safety Report 5057366-1 (Version None)
Quarter: 2006Q3

REPORT INFORMATION
  Report Type: 
  Country: None (occurrence: None)
  Receive Date: 20060721
  Receipt Date: 20050829
  Transmission Date: 20061208
  Serious: No
  Sender: FDA-Public Use
  Company Number: US-GLAXOSMITHKLINE-A0572209A

PATIENT
  Age: 49 Year
  Sex: Female

DRUGS (9)
  1. AVANDIA [Suspect]
     Dosage: 4MG PER DAY
     Route: 048
     Dates: start: 20050826
  2. RISPERDAL [Suspect]
     Indication: SCHIZOPHRENIA
     Dosage: 2MG PER DAY
     Route: 048
  3. UNKNOWN MEDICATION [Concomitant]
  4. LISINOPRIL [Concomitant]
  5. TRIHEXYPHENIDYL HCL [Concomitant]
  6. LANTUS [Concomitant]
  7. RISPERDAL [Concomitant]
  8. PROZAC [Concomitant]
  9. PERPHENAZINE [Concomitant]

REACTIONS (1)
  - BLOOD GLUCOSE INCREASED [None]
